FAERS Safety Report 9674291 (Version 1)
Quarter: 2013Q4

REPORT INFORMATION
  Report Type: Spontaneous
  Country: RO (occurrence: RO)
  Receive Date: 20131107
  Receipt Date: 20131107
  Transmission Date: 20140711
  Serious: Yes (Death)
  Sender: FDA-Public Use
  Company Number: RO-ROCHE-1298620

PATIENT
  Age: 59 Year
  Sex: Female
  Weight: 67 kg

DRUGS (1)
  1. HERCEPTIN [Suspect]
     Indication: BREAST CANCER
     Dosage: EVERY 21 DAYS
     Route: 042
     Dates: start: 20130114, end: 20131015

REACTIONS (2)
  - Hepatic failure [Fatal]
  - Metastases to liver [Fatal]
